FAERS Safety Report 8501819-8 (Version None)
Quarter: 2012Q3

REPORT INFORMATION
  Report Type: 
  Country: None (occurrence: None)
  Receive Date: 20120705
  Receipt Date: 20120705
  Transmission Date: 20120928
  Serious: Yes (Hospitalization)
  Sender: FDA-Public Use
  Company Number: None

PATIENT
  Age: 59 Year
  Sex: Male
  Weight: 94.9 kg

DRUGS (1)
  1. BENAZEPRIL HYDROCHLORIDE [Suspect]
     Indication: HYPERTENSION
     Dosage: MG EVERY DAY PO
     Route: 048
     Dates: start: 20051214, end: 20120620

REACTIONS (5)
  - RETCHING [None]
  - LOCAL SWELLING [None]
  - ANGIOEDEMA [None]
  - SWOLLEN TONGUE [None]
  - DYSPHAGIA [None]
